FAERS Safety Report 4814557-X (Version None)
Quarter: 2005Q4

REPORT INFORMATION
  Report Type: 
  Country: None (occurrence: None)
  Receive Date: 20051028
  Receipt Date: 20030205
  Transmission Date: 20060501
  Serious: Yes (Hospitalization)
  Sender: FDA-Public Use
  Company Number: GB-SOLVAY-00205003456

PATIENT
  Age: 94 Year
  Sex: Female
  Weight: 65 kg

DRUGS (2)
  1. INDOCID [Concomitant]
     Indication: ILL-DEFINED DISORDER
     Dosage: DAILY DOSE:  UNKNOWN
     Route: 048
     Dates: start: 20030108
  2. PERINDOPRIL [Suspect]
     Indication: CARDIAC FAILURE CONGESTIVE
     Dosage: DAILY DOSE: 4 MILLIGRAM(S)
     Route: 048
     Dates: start: 20000920, end: 20030106

REACTIONS (3)
  - DEHYDRATION [None]
  - FALL [None]
  - FEMORAL NECK FRACTURE [None]
